FAERS Safety Report 18632999 (Version 1)
Quarter: 2020Q4

REPORT INFORMATION
  Report Type: Spontaneous
  Country: FR (occurrence: FR)
  Receive Date: 20201218
  Receipt Date: 20201218
  Transmission Date: 20210114
  Serious: Yes (Hospitalization)
  Sender: FDA-Public Use
  Company Number: FR-TEVA-2020-FR-1858820

PATIENT
  Age: 60 Year
  Sex: Male

DRUGS (3)
  1. METFORMINE [Suspect]
     Active Substance: METFORMIN HYDROCHLORIDE
     Indication: INTENTIONAL OVERDOSE
     Dosage: UNIT DOSE : 90 G
     Route: 048
     Dates: start: 20150306, end: 20150306
  2. JANUMET [Suspect]
     Active Substance: METFORMIN HYDROCHLORIDE\SITAGLIPTIN PHOSPHATE
     Indication: INTENTIONAL OVERDOSE
     Dosage: UNIT DOSE :  28 DF
     Route: 048
     Dates: start: 20150306, end: 20150306
  3. APROVEL 150 MG, COMPRIME [Suspect]
     Active Substance: IRBESARTAN
     Indication: INTENTIONAL OVERDOSE
     Dosage: UNIT DOSE :  90 DF
     Route: 048
     Dates: start: 20150306, end: 20150306

REACTIONS (3)
  - Lactic acidosis [Recovered/Resolved]
  - Intentional overdose [Recovered/Resolved]
  - Acute kidney injury [Recovered/Resolved]

NARRATIVE: CASE EVENT DATE: 20150306
